FAERS Safety Report 16683560 (Version 1)
Quarter: 2019Q3

REPORT INFORMATION
  Report Type: Spontaneous
  Country: US (occurrence: US)
  Receive Date: 20190808
  Receipt Date: 20190808
  Transmission Date: 20191004
  Serious: No
  Sender: FDA-Public Use
  Company Number: US-ALLERGAN-1913242US

PATIENT
  Sex: Male

DRUGS (1)
  1. ANDRODERM [Suspect]
     Active Substance: TESTOSTERONE
     Indication: OLFACTO GENITAL DYSPLASIA
     Dosage: 4 MG, QD
     Route: 062
     Dates: start: 2018

REACTIONS (1)
  - Off label use [Unknown]
